FAERS Safety Report 9471128 (Version 2)
Quarter: 2014Q1

REPORT INFORMATION
  Report Type: Spontaneous
  Country: US (occurrence: US)
  Receive Date: 20130822
  Receipt Date: 20140131
  Transmission Date: 20141002
  Serious: Yes (Other)
  Sender: FDA-Public Use
  Company Number: US-BAYER-2013-100542

PATIENT
  Age: 25 Year
  Sex: Female

DRUGS (1)
  1. MIRENA [Suspect]
     Dosage: 20 MCG/24HR, CONT
     Route: 015
     Dates: start: 20111025

REACTIONS (7)
  - Pelvic cyst [None]
  - Haemorrhagic ovarian cyst [None]
  - Endometriosis [None]
  - Abdominal pain lower [None]
  - Pain [None]
  - Injury [None]
  - Device expulsion [None]
